FAERS Safety Report 4438440-7 (Version None)
Quarter: 2004Q3

REPORT INFORMATION
  Report Type: 
  Country: None (occurrence: None)
  Receive Date: 20040831
  Receipt Date: 20040819
  Transmission Date: 20050211
  Serious: Yes (Hospitalization)
  Sender: FDA-Public Use
  Company Number: FR-BRISTOL-MYERS SQUIBB COMPANY-12676672

PATIENT
  Age: 63 Year
  Sex: Male

DRUGS (3)
  1. COAPROVEL TABS 150MG/12.5MG [Suspect]
     Indication: HYPERTENSION
     Route: 048
     Dates: end: 20040702
  2. DICLOFENAC [Interacting]
     Indication: BACK PAIN
     Route: 048
     Dates: start: 20040624, end: 20040629
  3. ACETAMINOPHEN [Concomitant]
     Indication: BACK PAIN
     Dates: start: 20040624, end: 20040701

REACTIONS (5)
  - DEHYDRATION [None]
  - DRUG INTERACTION [None]
  - FALL [None]
  - LYMPHANGITIS [None]
  - RENAL FAILURE ACUTE [None]
